FAERS Safety Report 22253753 (Version 1)
Quarter: 2023Q2

REPORT INFORMATION
  Report Type: Spontaneous
  Country: US (occurrence: None)
  Receive Date: 20230426
  Receipt Date: 20230426
  Transmission Date: 20230721
  Serious: No
  Sender: FDA-Public Use
  Company Number: 2023A094636

PATIENT
  Sex: Male

DRUGS (1)
  1. BREZTRI [Suspect]
     Active Substance: BUDESONIDE\FORMOTEROL\GLYCOPYRROLATE
     Route: 055

REACTIONS (6)
  - Tongue blistering [Unknown]
  - Chronic obstructive pulmonary disease [Unknown]
  - Hypoacusis [Unknown]
  - Laboratory test abnormal [Unknown]
  - Wrong technique in device usage process [Unknown]
  - Device delivery system issue [Unknown]
